FAERS Safety Report 5872281-9 (Version None)
Quarter: 2008Q3

REPORT INFORMATION
  Report Type: 
  Country: None (occurrence: None)
  Receive Date: 20080905
  Receipt Date: 20080903
  Transmission Date: 20090109
  Serious: Yes (Life-Threatening, Hospitalization, Other)
  Sender: FDA-Public Use
  Company Number: DE-MERCK-0809DEU00013

PATIENT
  Age: 67 Year
  Sex: Male

DRUGS (3)
  1. JANUVIA [Suspect]
     Indication: TYPE 2 DIABETES MELLITUS
     Route: 048
     Dates: start: 20080527
  2. HYDROCHLOROTHIAZIDE AND LOSARTAN POTASSIUM [Concomitant]
     Indication: HYPERTENSION
     Route: 048
     Dates: start: 20050101
  3. METFORMIN [Concomitant]
     Indication: TYPE 2 DIABETES MELLITUS
     Route: 048
     Dates: start: 20050101

REACTIONS (1)
  - CEREBROVASCULAR ACCIDENT [None]
